FAERS Safety Report 6405421-3 (Version None)
Quarter: 2009Q4

REPORT INFORMATION
  Report Type: 
  Country: None (occurrence: None)
  Receive Date: 20091019
  Receipt Date: 20091012
  Transmission Date: 20100525
  Serious: Yes (Other)
  Sender: FDA-Public Use
  Company Number: US-BAYER-200931259NA

PATIENT
  Sex: Female

DRUGS (1)
  1. MIRENA [Suspect]
     Indication: CONTRACEPTION
     Dosage: CONTINUOUS
     Route: 015
     Dates: start: 20090107, end: 20090819

REACTIONS (4)
  - ANTEPARTUM HAEMORRHAGE [None]
  - BLOOD HUMAN CHORIONIC GONADOTROPIN DECREASED [None]
  - PAIN [None]
  - PREGNANCY WITH CONTRACEPTIVE DEVICE [None]
